FAERS Safety Report 8919535 (Version 2)
Quarter: 2014Q1

REPORT INFORMATION
  Report Type: Spontaneous
  Country: US (occurrence: US)
  Receive Date: 20121121
  Receipt Date: 20140214
  Transmission Date: 20141002
  Serious: Yes (Other)
  Sender: FDA-Public Use
  Company Number: US-009507513-1211USA007522

PATIENT
  Age: 65 Year
  Sex: Female

DRUGS (7)
  1. INTEGRILIN [Suspect]
     Indication: ANTICOAGULANT THERAPY
     Dosage: 180 MCG/KG BOLUS WITH A 2MCG/KG/MIN
     Route: 042
     Dates: start: 2010
  2. ASPIRIN [Concomitant]
  3. LIQUAEMIN [Concomitant]
  4. CLOPIDOGREL [Concomitant]
  5. TAXOTERE [Concomitant]
  6. CARBOPLATIN [Concomitant]
  7. BIVALIRUDIN [Concomitant]

REACTIONS (3)
  - Thrombosis [Unknown]
  - Thrombocytopenia [Recovered/Resolved]
  - Platelet transfusion [Recovered/Resolved]
